FAERS Safety Report 10592239 (Version 3)
Quarter: 2015Q2

REPORT INFORMATION
  Report Type: Spontaneous
  Country: US (occurrence: US)
  Receive Date: 20141119
  Receipt Date: 20150428
  Transmission Date: 20150821
  Serious: No
  Sender: FDA-Public Use
  Company Number: US-BIOGENIDEC-2014BI119306

PATIENT
  Age: 36 Year
  Sex: Female

DRUGS (4)
  1. TECFIDERA [Suspect]
     Active Substance: DIMETHYL FUMARATE
     Indication: MULTIPLE SCLEROSIS
     Route: 048
     Dates: start: 20141031, end: 20141231
  2. TECFIDERA [Suspect]
     Active Substance: DIMETHYL FUMARATE
     Indication: MULTIPLE SCLEROSIS
     Route: 048
     Dates: start: 20141031, end: 20141106
  3. TECFIDERA [Suspect]
     Active Substance: DIMETHYL FUMARATE
     Indication: MULTIPLE SCLEROSIS
     Route: 048
  4. TECFIDERA [Suspect]
     Active Substance: DIMETHYL FUMARATE
     Indication: MULTIPLE SCLEROSIS
     Route: 048
     Dates: end: 20150101

REACTIONS (22)
  - Gingival bleeding [Recovered/Resolved]
  - Drug intolerance [Unknown]
  - Hallucination [Unknown]
  - Nausea [Not Recovered/Not Resolved]
  - Balance disorder [Unknown]
  - Flushing [Not Recovered/Not Resolved]
  - Dyskinesia [Unknown]
  - Rash papular [Not Recovered/Not Resolved]
  - Mental status changes [Recovered/Resolved]
  - Inappropriate schedule of drug administration [Recovered/Resolved]
  - Fatigue [Not Recovered/Not Resolved]
  - Disorientation [Unknown]
  - Mental impairment [Unknown]
  - Stress [Unknown]
  - Visual impairment [Recovered/Resolved]
  - Psoriasis [Unknown]
  - Cognitive disorder [Recovered/Resolved]
  - General physical health deterioration [Recovered/Resolved]
  - Dyspepsia [Recovered/Resolved]
  - Underdose [Not Recovered/Not Resolved]
  - General symptom [Recovered/Resolved]
  - Pruritus [Unknown]

NARRATIVE: CASE EVENT DATE: 20141031
